FAERS Safety Report 10080662 (Version 1)
Quarter: 2014Q2

REPORT INFORMATION
  Report Type: Spontaneous
  Country: CH (occurrence: None)
  Receive Date: 20140414
  Receipt Date: 20140414
  Transmission Date: 20141212
  Serious: Yes (Hospitalization)
  Sender: FDA-Public Use
  Company Number: 20140207

PATIENT
  Age: 59 Year
  Sex: Male

DRUGS (1)
  1. FERINJECT (FERRIC CARBOXYMALTOSE - VIFOR) [Suspect]
     Indication: ANAEMIA

REACTIONS (1)
  - Investigation [None]
